FAERS Safety Report 12139283 (Version 1)
Quarter: 2016Q1

REPORT INFORMATION
  Report Type: Spontaneous
  Country: JP (occurrence: JP)
  Receive Date: 20160303
  Receipt Date: 20160303
  Transmission Date: 20160526
  Serious: Yes (Hospitalization)
  Sender: FDA-Public Use
  Company Number: JP-ABBVIE-16P-087-1555490-00

PATIENT
  Age: 2 Year
  Sex: Female
  Weight: 7.4 kg

DRUGS (4)
  1. SYNAGIS [Suspect]
     Active Substance: PALIVIZUMAB
     Indication: TRISOMY 18
     Route: 030
     Dates: start: 20151020
  2. SYNAGIS [Suspect]
     Active Substance: PALIVIZUMAB
     Indication: CARDIAC DISORDER
  3. SYNAGIS [Suspect]
     Active Substance: PALIVIZUMAB
     Indication: CYTOGENETIC ABNORMALITY
  4. SYNAGIS [Suspect]
     Active Substance: PALIVIZUMAB
     Indication: ANTIVIRAL PROPHYLAXIS

REACTIONS (13)
  - Bacterial test positive [Unknown]
  - Chest X-ray abnormal [Unknown]
  - Drug ineffective [Recovering/Resolving]
  - Pyrexia [Recovered/Resolved]
  - Respiratory distress [Unknown]
  - Respiratory distress [Unknown]
  - Diarrhoea [Unknown]
  - Respiratory disorder [Unknown]
  - Infection [Unknown]
  - Pneumonia respiratory syncytial viral [Recovering/Resolving]
  - Rhinorrhoea [Unknown]
  - Dyspnoea [Unknown]
  - Pneumonia aspiration [Unknown]

NARRATIVE: CASE EVENT DATE: 201601
